FAERS Safety Report 6546808-8 (Version None)
Quarter: 2010Q1

REPORT INFORMATION
  Report Type: 
  Country: None (occurrence: None)
  Receive Date: 20100119
  Receipt Date: 20100104
  Transmission Date: 20100710
  Serious: Yes (Hospitalization)
  Sender: FDA-Public Use
  Company Number: 2009AC000113

PATIENT
  Sex: Male

DRUGS (32)
  1. DIGOXIN [Suspect]
     Dosage: PO
     Route: 048
     Dates: start: 19970101
  2. TERAZOSIN HCL [Concomitant]
  3. GLYBURIDE [Concomitant]
  4. LORAZEPAM [Concomitant]
  5. LASIX [Concomitant]
  6. DIOVAN [Concomitant]
  7. VENTOLIN [Concomitant]
  8. ATROVENT [Concomitant]
  9. RESTORIL [Concomitant]
  10. PREDISONE [Concomitant]
  11. ALBUTEROL [Concomitant]
  12. TERZOCIN [Concomitant]
  13. ARTHROENZYME [Concomitant]
  14. FLUNISOLIDE NASAL [Concomitant]
  15. LIQUID SILVER [Concomitant]
  16. NEO-SYNEPHRINOL [Concomitant]
  17. AMBIEN [Concomitant]
  18. SAW PALMETTO [Concomitant]
  19. RED YEAST RICE [Concomitant]
  20. SPIRIVA [Concomitant]
  21. LORAZEPAN [Concomitant]
  22. CPAP [Concomitant]
  23. OCEAN SPRAY [Concomitant]
  24. ADVAIR [Concomitant]
  25. ALLERGY INJECTION [Concomitant]
  26. SINUS IRRIGATION [Concomitant]
  27. CLARINEX [Concomitant]
  28. ASTELIN [Concomitant]
  29. ATROVENT [Concomitant]
  30. TEMAXEPAM [Concomitant]
  31. LUNESTA [Concomitant]
  32. SONATA [Concomitant]

REACTIONS (43)
  - ABDOMINAL PAIN UPPER [None]
  - ANEURYSM [None]
  - ANXIETY [None]
  - ASPIRATION [None]
  - BENIGN PROSTATIC HYPERPLASIA [None]
  - BIPOLAR DISORDER [None]
  - CARDIAC FAILURE CONGESTIVE [None]
  - CHRONIC OBSTRUCTIVE PULMONARY DISEASE [None]
  - CONFUSIONAL STATE [None]
  - CORONARY ARTERY DISEASE [None]
  - DELIRIUM [None]
  - DIABETES MELLITUS [None]
  - DRUG ABUSER [None]
  - DYSPHAGIA [None]
  - DYSPNOEA [None]
  - ECONOMIC PROBLEM [None]
  - HEPATIC VEIN THROMBOSIS [None]
  - HYPERGLYCAEMIA [None]
  - HYPERKINESIA [None]
  - HYPERTENSION [None]
  - ISCHAEMIC HEPATITIS [None]
  - LETHARGY [None]
  - LEUKOCYTOSIS [None]
  - MENTAL STATUS CHANGES [None]
  - MULTIPLE INJURIES [None]
  - NASAL CONGESTION [None]
  - PANCREATITIS [None]
  - PNEUMONIA [None]
  - PRODUCTIVE COUGH [None]
  - PYREXIA [None]
  - RENAL FAILURE ACUTE [None]
  - RESPIRATORY DISORDER [None]
  - RESPIRATORY FAILURE [None]
  - RHINITIS ALLERGIC [None]
  - RHINORRHOEA [None]
  - SEPSIS [None]
  - SINUSITIS FUNGAL [None]
  - SLEEP APNOEA SYNDROME [None]
  - SLEEP DISORDER [None]
  - TACHYPNOEA [None]
  - UNEVALUABLE EVENT [None]
  - UNRESPONSIVE TO STIMULI [None]
  - URINARY TRACT INFECTION [None]
